FAERS Safety Report 24265650 (Version 1)
Quarter: 2024Q3

REPORT INFORMATION
  Report Type: Spontaneous
  Country: US (occurrence: US)
  Receive Date: 20240829
  Receipt Date: 20240829
  Transmission Date: 20241017
  Serious: No
  Sender: JOHNSON AND JOHNSON
  Company Number: US-JNJFOC-20240851658

PATIENT

DRUGS (1)
  1. RYBREVANT [Suspect]
     Active Substance: AMIVANTAMAB-VMJW
     Indication: Product used for unknown indication
     Route: 065
     Dates: start: 20240626

REACTIONS (4)
  - Lip pain [Unknown]
  - Lip haemorrhage [Unknown]
  - Lip exfoliation [Unknown]
  - Lip blister [Unknown]

NARRATIVE: CASE EVENT DATE: 20240806
